FAERS Safety Report 6683047-4 (Version None)
Quarter: 2010Q2

REPORT INFORMATION
  Report Type: 
  Country: None (occurrence: None)
  Receive Date: 20100415
  Receipt Date: 20100406
  Transmission Date: 20101027
  Serious: Yes (Other)
  Sender: FDA-Public Use
  Company Number: PHHY2010US19534

PATIENT
  Sex: Female

DRUGS (2)
  1. TRILEPTAL [Suspect]
  2. OXCARBAZEPINE [Suspect]

REACTIONS (4)
  - CONVULSION [None]
  - DRUG INEFFECTIVE [None]
  - INFLUENZA [None]
  - PRODUCT SUBSTITUTION ISSUE [None]
